FAERS Safety Report 23627209 (Version 2)
Quarter: 2024Q2

REPORT INFORMATION
  Report Type: Report from Study
  Country: US (occurrence: US)
  Receive Date: 20240313
  Receipt Date: 20240606
  Transmission Date: 20240715
  Serious: No
  Sender: FDA-Public Use
  Company Number: US-SPRINGWORKS THERAPEUTICS-SW-001210

PATIENT
  Age: 76 Year
  Sex: Male
  Weight: 71.655 kg

DRUGS (2)
  1. NIROGACESTAT [Suspect]
     Active Substance: NIROGACESTAT
     Indication: Desmoid tumour
     Dosage: 150.0 MILLIGRAM, BID
     Route: 048
     Dates: start: 20231221
  2. NIROGACESTAT [Suspect]
     Active Substance: NIROGACESTAT
     Dosage: 150 MILLIGRAM, BID
     Route: 048
     Dates: start: 20240124

REACTIONS (13)
  - Pruritus [Unknown]
  - Insomnia [Not Recovered/Not Resolved]
  - Eye discharge [Unknown]
  - Pain [Not Recovered/Not Resolved]
  - Arthralgia [Unknown]
  - Ligament pain [Unknown]
  - Dry eye [Unknown]
  - Neck pain [Not Recovered/Not Resolved]
  - Iris disorder [Unknown]
  - Neoplasm progression [Unknown]
  - Alopecia [Unknown]
  - Rash [Unknown]
  - Diarrhoea [Unknown]

NARRATIVE: CASE EVENT DATE: 20231221
